FAERS Safety Report 4590855-2 (Version None)
Quarter: 2005Q1

REPORT INFORMATION
  Report Type: 
  Country: None (occurrence: None)
  Receive Date: 20050222
  Receipt Date: 20050222
  Transmission Date: 20050727
  Serious: Yes (Other)
  Sender: FDA-Public Use
  Company Number: None

PATIENT
  Sex: Male
  Weight: 90 kg

DRUGS (1)
  1. TRETINOIN [Suspect]
     Dates: start: 20050128

REACTIONS (5)
  - CHILLS [None]
  - HAEMATURIA [None]
  - HYPOXIA [None]
  - LEUKOCYTOSIS [None]
  - PYREXIA [None]
